FAERS Safety Report 7400226-9 (Version None)
Quarter: 2011Q2

REPORT INFORMATION
  Report Type: 
  Country: None (occurrence: None)
  Receive Date: 20110405
  Receipt Date: 20110405
  Transmission Date: 20111010
  Serious: Yes (Life-Threatening, Hospitalization)
  Sender: FDA-Public Use
  Company Number: None

PATIENT
  Sex: Female

DRUGS (2)
  1. AVELOX [Suspect]
     Indication: COUGH
     Dosage: 400MG ONCE PO
     Route: 048
     Dates: start: 20110208, end: 20110208
  2. AVELOX [Suspect]
     Indication: RESPIRATORY TRACT CONGESTION
     Dosage: 400MG ONCE PO
     Route: 048
     Dates: start: 20110208, end: 20110208

REACTIONS (5)
  - PRURITUS [None]
  - EYE SWELLING [None]
  - PHARYNGEAL OEDEMA [None]
  - SWELLING FACE [None]
  - DYSPNOEA [None]
